FAERS Safety Report 11194094 (Version 1)
Quarter: 2015Q2

REPORT INFORMATION
  Report Type: Spontaneous
  Country: KR (occurrence: KR)
  Receive Date: 20150616
  Receipt Date: 20150616
  Transmission Date: 20150821
  Serious: Yes (Other)
  Sender: FDA-Public Use
  Company Number: KR-MYLANLABS-2015M1019822

PATIENT

DRUGS (2)
  1. IOMERON [Concomitant]
     Active Substance: IOMEPROL
     Indication: PRODUCT USED FOR UNKNOWN INDICATION
     Dosage: 70 ML AT 4 ML/SEC
     Route: 065
  2. ADENOSINE. [Suspect]
     Active Substance: ADENOSINE
     Indication: CARDIAC STRESS TEST
     Dosage: 0.14 MG/KG/MIN
     Route: 041

REACTIONS (1)
  - Arteriospasm coronary [Recovering/Resolving]
